FAERS Safety Report 17909440 (Version 1)
Quarter: 2020Q2

REPORT INFORMATION
  Report Type: Spontaneous
  Country: DE (occurrence: DE)
  Receive Date: 20200618
  Receipt Date: 20200618
  Transmission Date: 20200714
  Serious: Yes (Hospitalization)
  Sender: FDA-Public Use
  Company Number: DE-AUROBINDO-AUR-APL-2020-029360

PATIENT
  Age: 58 Year
  Sex: Male

DRUGS (4)
  1. CEFUROXIME. [Suspect]
     Active Substance: CEFUROXIME
     Indication: WOUND NECROSIS
     Dosage: UNK
     Route: 065
  2. CLINDAMYCIN. [Suspect]
     Active Substance: CLINDAMYCIN
     Indication: WOUND NECROSIS
     Dosage: UNK
     Route: 065
  3. AMOXICILLIN+CLAVULANIC ACID [Suspect]
     Active Substance: AMOXICILLIN\CLAVULANIC ACID
     Indication: WOUND NECROSIS
     Dosage: UNK
     Route: 065
  4. FOSFOMYCIN [Suspect]
     Active Substance: FOSFOMYCIN
     Indication: WOUND NECROSIS
     Dosage: UNK
     Route: 065

REACTIONS (2)
  - Inflammation [Unknown]
  - Pyrexia [Unknown]
